FAERS Safety Report 21985999 (Version 1)
Quarter: 2023Q1

REPORT INFORMATION
  Report Type: Spontaneous
  Country: US (occurrence: None)
  Receive Date: 20230210
  Receipt Date: 20230210
  Transmission Date: 20230417
  Serious: Yes (Hospitalization)
  Sender: FDA-Public Use
  Company Number: None

PATIENT
  Sex: Female

DRUGS (17)
  1. SORAFENIB [Suspect]
     Active Substance: SORAFENIB
     Indication: Hepatocellular carcinoma
     Dosage: TAKE 2 TABLETS BY MOUTH EVERY MORNING AND 2 TABLETS BY MOUTH EVERY EVENING?
     Route: 048
     Dates: start: 20230119
  2. ACETAMINOPHEN\CODEINE PHOSPHATE [Concomitant]
     Active Substance: ACETAMINOPHEN\CODEINE PHOSPHATE
  3. CITALOPRAM [Concomitant]
     Active Substance: CITALOPRAM HYDROBROMIDE
  4. ESCITALOPRAM [Concomitant]
     Active Substance: ESCITALOPRAM OXALATE
  5. FAMOTIDINE [Concomitant]
     Active Substance: FAMOTIDINE
  6. FUROSEMIDE [Concomitant]
     Active Substance: FUROSEMIDE
  7. HYDROXYZINE HYDROCHLORIDE [Concomitant]
     Active Substance: HYDROXYZINE HYDROCHLORIDE
  8. LEVEMIR [Concomitant]
  9. LISINOPRIL AND HYDROCHLOROTHIAZIDE [Concomitant]
     Active Substance: HYDROCHLOROTHIAZIDE\LISINOPRIL
  10. MECLIZINE [Concomitant]
     Active Substance: MECLIZINE HYDROCHLORIDE
  11. MYCOPHENOLAT [Concomitant]
  12. NIFEDIPINE [Concomitant]
     Active Substance: NIFEDIPINE
  13. PREDNISONE [Concomitant]
     Active Substance: PREDNISONE
  14. TACROLIMUS [Concomitant]
     Active Substance: TACROLIMUS
  15. URSODIOL [Concomitant]
  16. VALGANCICLOV [Concomitant]
  17. XIFAXAN [Concomitant]
     Active Substance: RIFAXIMIN

REACTIONS (1)
  - Hepatic enzyme increased [None]
